FAERS Safety Report 12370233 (Version 1)
Quarter: 2016Q2

REPORT INFORMATION
  Report Type: Report from Study
  Country: US (occurrence: US)
  Receive Date: 20160516
  Receipt Date: 20160516
  Transmission Date: 20160815
  Serious: Yes (Death, Hospitalization)
  Sender: FDA-Public Use
  Company Number: US-ASTRAZENECA-2016SE26058

PATIENT
  Age: 85 Year
  Sex: Male

DRUGS (1)
  1. LYNPARZA [Suspect]
     Active Substance: OLAPARIB
     Indication: PROSTATE CANCER
     Route: 048
     Dates: start: 20160224

REACTIONS (5)
  - Off label use [Unknown]
  - Dyspnoea [Unknown]
  - Death [Fatal]
  - Sepsis [Unknown]
  - Product use issue [Unknown]
